FAERS Safety Report 8507242-4 (Version None)
Quarter: 2012Q3

REPORT INFORMATION
  Report Type: 
  Country: None (occurrence: None)
  Receive Date: 20120712
  Receipt Date: 20120702
  Transmission Date: 20120928
  Serious: Yes (Life-Threatening)
  Sender: FDA-Public Use
  Company Number: IT-FRI-1000006445

PATIENT
  Sex: Female
  Weight: 60 kg

DRUGS (5)
  1. LEVOTHYROXINE SODIUM [Concomitant]
     Dosage: 50 MCG
     Route: 048
  2. ESCITALOPRAM [Suspect]
     Indication: DEPRESSION
     Dosage: 10 MG
     Route: 048
     Dates: start: 20090101, end: 20090501
  3. VALSARTAN [Suspect]
     Indication: CEREBRAL HAEMORRHAGE
     Dosage: 80 MG
     Route: 048
     Dates: start: 20070101
  4. ROSUVASTATIN CALCIUM [Concomitant]
     Indication: HYPERCHOLESTEROLAEMIA
     Dosage: 10 MG
     Route: 048
     Dates: start: 20080901
  5. PHENOBARBITAL [Concomitant]
     Dosage: 100 MG
     Route: 048

REACTIONS (1)
  - CEREBRAL HAEMORRHAGE [None]
